FAERS Safety Report 6220907-2 (Version None)
Quarter: 2009Q2

REPORT INFORMATION
  Report Type: 
  Country: None (occurrence: None)
  Receive Date: 20090610
  Receipt Date: 20090130
  Transmission Date: 20091009
  Serious: Yes (Hospitalization)
  Sender: FDA-Public Use
  Company Number: GB-PFIZER INC-2008155450

PATIENT
  Sex: Female
  Weight: 63 kg

DRUGS (3)
  1. BLINDED *PLACEBO [Suspect]
     Dosage: UNK
     Dates: start: 20080408
  2. BLINDED CELECOXIB [Suspect]
     Dosage: UNK
     Dates: start: 20080408
  3. OMEPRAZOLE [Concomitant]
     Route: 048

REACTIONS (3)
  - ABDOMINAL PAIN [None]
  - CHOLECYSTITIS ACUTE [None]
  - LIVER FUNCTION TEST ABNORMAL [None]
